FAERS Safety Report 10041747 (Version 3)
Quarter: 2014Q4

REPORT INFORMATION
  Report Type: Spontaneous
  Country: US (occurrence: None)
  Receive Date: 20140325
  Receipt Date: 20141128
  Transmission Date: 20150528
  Serious: Yes (Other)
  Sender: FDA-Public Use
  Company Number: 2014-US-003325

PATIENT
  Age: 36 Year
  Sex: Male
  Weight: 73.5 kg

DRUGS (12)
  1. LORAZEPAM (LORAZEPAM) [Concomitant]
     Active Substance: LORAZEPAM
  2. ADDERALL [Concomitant]
     Active Substance: AMPHETAMINE ASPARTATE\AMPHETAMINE SULFATE\DEXTROAMPHETAMINE SACCHARATE\DEXTROAMPHETAMINE SULFATE
  3. KEPPRA [Suspect]
     Active Substance: LEVETIRACETAM
     Indication: SEIZURE
     Route: 048
  4. ZOFRAN (ONDANSETRON HYDROCHLORIDE) [Concomitant]
  5. ONDANSETRON [Concomitant]
     Active Substance: ONDANSETRON
  6. GABAPENTIN (GABAPENTIN) [Concomitant]
     Active Substance: GABAPENTIN
  7. OMEPRAZOLE (OMEPRAZOLE) [Concomitant]
     Active Substance: OMEPRAZOLE
  8. XYREM [Suspect]
     Active Substance: SODIUM OXYBATE
     Indication: NARCOLEPSY
     Route: 048
     Dates: start: 201105, end: 2011
  9. TRAMADOL (TRAMADOL HYDROCHLORIDE) [Concomitant]
     Active Substance: TRAMADOL HYDROCHLORIDE
  10. CALCIUM (CALCIUM) [Concomitant]
     Active Substance: CALCIUM
  11. PROMETHAZINE [Concomitant]
     Active Substance: PROMETHAZINE\PROMETHAZINE HYDROCHLORIDE
  12. HYDROCODONE (HYDROCODONE) [Concomitant]
     Active Substance: HYDROCODONE

REACTIONS (16)
  - Balance disorder [None]
  - Animal bite [None]
  - Brain neoplasm benign [None]
  - Cancer surgery [None]
  - Drug dose omission [None]
  - Dental caries [None]
  - Condition aggravated [None]
  - Septic shock [None]
  - Neuralgia [None]
  - Fall [None]
  - Feeling abnormal [None]
  - Memory impairment [None]
  - Seizure [None]
  - Migraine [None]
  - Head injury [None]
  - Intestinal polyp [None]

NARRATIVE: CASE EVENT DATE: 2013
